FAERS Safety Report 20865489 (Version 3)
Quarter: 2022Q3

REPORT INFORMATION
  Report Type: Spontaneous
  Country: US (occurrence: None)
  Receive Date: 20220524
  Receipt Date: 20220701
  Transmission Date: 20221027
  Serious: No
  Sender: FDA-Public Use
  Company Number: 2022A165101

PATIENT
  Age: 20302 Day
  Sex: Female
  Weight: 83.9 kg

DRUGS (2)
  1. BUDESONIDE\FORMOTEROL\GLYCOPYRRONIUM [Suspect]
     Active Substance: BUDESONIDE\FORMOTEROL\GLYCOPYRRONIUM
     Indication: Chronic obstructive pulmonary disease
     Dosage: 160/9/4.8MCG 2 PUFFS TWICE DAILY
     Route: 055
  2. SYMBICORT [Suspect]
     Active Substance: BUDESONIDE\FORMOTEROL FUMARATE DIHYDRATE
     Indication: Chronic obstructive pulmonary disease
     Dosage: 2 PUFFS TWO TIMES A DAY
     Route: 055

REACTIONS (5)
  - Cough [Recovered/Resolved]
  - Device delivery system issue [Unknown]
  - Wrong technique in device usage process [Recovered/Resolved]
  - Device malfunction [Recovered/Resolved]
  - Drug ineffective [Recovered/Resolved]
